FAERS Safety Report 5851750-1 (Version None)
Quarter: 2008Q3

REPORT INFORMATION
  Report Type: 
  Country: None (occurrence: None)
  Receive Date: 20080820
  Receipt Date: 20080819
  Transmission Date: 20090109
  Serious: Yes (Other)
  Sender: FDA-Public Use
  Company Number: PHHY2008AT15624

PATIENT
  Age: 43 Year
  Sex: Female
  Weight: 78 kg

DRUGS (2)
  1. SEQUIDOT [Suspect]
     Indication: PREMATURE MENOPAUSE
     Dosage: UNK
     Route: 062
     Dates: start: 20080417, end: 20080801
  2. SEQUIDOT [Suspect]
     Dosage: UNK

REACTIONS (7)
  - HEPATIC PAIN [None]
  - MENORRHAGIA [None]
  - METRORRHAGIA [None]
  - NAUSEA [None]
  - SKIN EXFOLIATION [None]
  - SKIN IRRITATION [None]
  - WEIGHT INCREASED [None]
